FAERS Safety Report 15853677 (Version 1)
Quarter: 2019Q1

REPORT INFORMATION
  Report Type: Spontaneous
  Country: US (occurrence: US)
  Receive Date: 20190121
  Receipt Date: 20190121
  Transmission Date: 20190417
  Serious: Yes (Hospitalization)
  Sender: FDA-Public Use
  Company Number: None

PATIENT
  Age: 47 Year
  Sex: Male

DRUGS (1)
  1. AJOVY [Suspect]
     Active Substance: FREMANEZUMAB-VFRM
     Indication: MIGRAINE PROPHYLAXIS
     Dosage: ?          OTHER FREQUENCY:ONCE A MONTH;?
     Route: 030
     Dates: start: 20181225

REACTIONS (18)
  - Decreased appetite [None]
  - Insomnia [None]
  - Presyncope [None]
  - Depression [None]
  - Anxiety [None]
  - Apathy [None]
  - Vision blurred [None]
  - Tinnitus [None]
  - Dyspnoea [None]
  - Dizziness [None]
  - Vertigo [None]
  - Mood altered [None]
  - Hypotension [None]
  - Abdominal pain upper [None]
  - Feeling abnormal [None]
  - Hypoaesthesia [None]
  - Blood sodium decreased [None]
  - Fatigue [None]

NARRATIVE: CASE EVENT DATE: 20181225
